FAERS Safety Report 16438808 (Version 1)
Quarter: 2019Q2

REPORT INFORMATION
  Report Type: Report from Study
  Country: None (occurrence: US)
  Receive Date: 20190617
  Receipt Date: 20190617
  Transmission Date: 20190711
  Serious: Yes (Hospitalization)
  Sender: FDA-Public Use
  Company Number: US-ABBVIE-19K-163-2812695-00

PATIENT
  Age: 69 Year
  Sex: Female

DRUGS (3)
  1. BUTALBITAL AND ACETAMINOPHEN [Concomitant]
     Active Substance: ACETAMINOPHEN\BUTALBITAL
     Indication: HEADACHE
     Dosage: AS NEEDED
  2. HUMIRA [Suspect]
     Active Substance: ADALIMUMAB
     Indication: RHEUMATOID ARTHRITIS
     Route: 058
  3. HUMIRA [Suspect]
     Active Substance: ADALIMUMAB
     Route: 058

REACTIONS (6)
  - Malaise [Unknown]
  - Brain operation [Recovering/Resolving]
  - Device issue [Unknown]
  - Stent malfunction [Unknown]
  - Wrong technique in product usage process [Unknown]
  - Aneurysm [Recovered/Resolved with Sequelae]

NARRATIVE: CASE EVENT DATE: 2011
